FAERS Safety Report 16418498 (Version 3)
Quarter: 2019Q2

REPORT INFORMATION
  Report Type: Spontaneous
  Country: US (occurrence: US)
  Receive Date: 20190612
  Receipt Date: 20190621
  Transmission Date: 20190711
  Serious: No
  Sender: FDA-Public Use
  Company Number: US-ASTRAZENECA-2019SE80117

PATIENT
  Age: 78 Year
  Sex: Male

DRUGS (2)
  1. LUMOXITI [Suspect]
     Active Substance: MOXETUMOMAB PASUDOTOX-TDFK
     Indication: HAIRY CELL LEUKAEMIA
     Dosage: 0.04 MG/KG ON DAYS 1, 3, AND 5 OF A 28 DAY CYCLE
     Route: 042
     Dates: start: 201904
  2. IMFINZI [Suspect]
     Active Substance: DURVALUMAB
     Dosage: UNKNOWN
     Route: 042

REACTIONS (5)
  - Fluid overload [Unknown]
  - Weight increased [Unknown]
  - Weight decreased [Recovered/Resolved]
  - White blood cell count increased [Unknown]
  - Thirst [Unknown]
